FAERS Safety Report 7459878-X (Version None)
Quarter: 2011Q2

REPORT INFORMATION
  Report Type: 
  Country: None (occurrence: None)
  Receive Date: 20110504
  Receipt Date: 20110504
  Transmission Date: 20111010
  Serious: Yes (Life-Threatening, Hospitalization)
  Sender: FDA-Public Use
  Company Number: None

PATIENT
  Sex: Male
  Weight: 71 kg

DRUGS (1)
  1. ASPIRIN [Suspect]
     Dosage: 81 MG DAILY PO
     Route: 048
     Dates: start: 20110115, end: 20110119

REACTIONS (1)
  - DUODENAL ULCER HAEMORRHAGE [None]
